FAERS Safety Report 9123327 (Version 1)
Quarter: 2013Q1

REPORT INFORMATION
  Report Type: Spontaneous
  Country: US (occurrence: None)
  Receive Date: 20130131
  Receipt Date: 20130131
  Transmission Date: 20140127
  Serious: Yes (Death)
  Sender: FDA-Public Use
  Company Number: DKLU1088383

PATIENT
  Age: 1 Day
  Sex: Female

DRUGS (2)
  1. DESOXYN [Suspect]
     Indication: PRODUCT USED FOR UNKNOWN INDICATION
     Dosage: OTHER
  2. AMPHETAMINE [Suspect]
     Dosage: OTHER

REACTIONS (1)
  - Death [None]
